FAERS Safety Report 7524820-X (Version None)
Quarter: 2011Q2

REPORT INFORMATION
  Report Type: 
  Country: None (occurrence: None)
  Receive Date: 20110525
  Receipt Date: 20110517
  Transmission Date: 20111010
  Serious: Yes (Other)
  Sender: FDA-Public Use
  Company Number: 2011SP022772

PATIENT
  Age: 53 Year
  Sex: Male
  Weight: 85 kg

DRUGS (7)
  1. INTERFERON ALFA 2A (INTERFERON ALFA-2A) [Suspect]
     Indication: HEPATITIS C
     Dates: start: 20100728, end: 20110330
  2. SMECTA	/03389001/ [Concomitant]
  3. DIPYRONE [Concomitant]
  4. RIBAVIRIN [Suspect]
     Indication: HEPATITIS C
     Dosage: 1200 MG; 800 MG; 600 MG;
     Dates: start: 20100728, end: 20100810
  5. RIBAVIRIN [Suspect]
     Indication: HEPATITIS C
     Dosage: 1200 MG; 800 MG; 600 MG;
     Dates: start: 20101007, end: 20110403
  6. RIBAVIRIN [Suspect]
     Indication: HEPATITIS C
     Dosage: 1200 MG; 800 MG; 600 MG;
     Dates: start: 20100811, end: 20101007
  7. ST JOHN'S WORT [Concomitant]

REACTIONS (9)
  - HYPERBILIRUBINAEMIA [None]
  - ASPARTATE AMINOTRANSFERASE INCREASED [None]
  - GAMMA-GLUTAMYLTRANSFERASE INCREASED [None]
  - DIARRHOEA [None]
  - HEADACHE [None]
  - ALANINE AMINOTRANSFERASE INCREASED [None]
  - BLOOD LACTATE DEHYDROGENASE INCREASED [None]
  - NEUTROPENIA [None]
  - BILIRUBIN CONJUGATED INCREASED [None]
